FAERS Safety Report 6795148-0 (Version None)
Quarter: 2010Q2

REPORT INFORMATION
  Report Type: 
  Country: None (occurrence: None)
  Receive Date: 20100625
  Receipt Date: 20100625
  Transmission Date: 20101027
  Serious: Yes (Hospitalization)
  Sender: FDA-Public Use
  Company Number: PHHO2008NL10728

PATIENT
  Sex: Female

DRUGS (14)
  1. AFINITOR [Suspect]
     Indication: PANCREATIC NEUROENDOCRINE TUMOUR
     Dosage: 10 MG DAILY
     Route: 048
     Dates: start: 20080531, end: 20080819
  2. K CL TAB [Concomitant]
  3. SANDOSTATIN LAR [Concomitant]
  4. SALBUTAMOL [Concomitant]
  5. VITAMIN B-12 [Concomitant]
  6. NOVORAPID [Concomitant]
  7. LANTUS [Concomitant]
  8. LOPERAMIDE [Concomitant]
  9. OXAZEPAM [Concomitant]
  10. DICLOFENAC SODIUM [Concomitant]
  11. IBUPROFEN [Concomitant]
  12. DOLIPRANE [Concomitant]
  13. PARACETAMOL [Concomitant]
  14. ANTIBIOTICS [Concomitant]

REACTIONS (1)
  - DYSPNOEA [None]
